FAERS Safety Report 9562171 (Version 3)
Quarter: 2014Q1

REPORT INFORMATION
  Report Type: Report from Study
  Country: DE (occurrence: DE)
  Receive Date: 20130927
  Receipt Date: 20140117
  Transmission Date: 20141002
  Serious: Yes (Hospitalization)
  Sender: FDA-Public Use
  Company Number: DE-ELI_LILLY_AND_COMPANY-DE201309004489

PATIENT
  Sex: Female
  Weight: 63.5 kg

DRUGS (4)
  1. GEMCITABINE HYDROCHLORIDE [Suspect]
     Indication: BREAST CANCER
     Dosage: 1750 MG, OTHER
     Route: 042
     Dates: start: 20070301, end: 20070329
  2. DOCETAXEL [Suspect]
     Indication: BREAST CANCER
     Dosage: 131 MG, QD
     Route: 042
     Dates: start: 20070301, end: 20070322
  3. FLUCONAZOLE [Concomitant]
     Indication: MUCOSAL INFLAMMATION
     Dosage: 200 MG, UNK
     Route: 048
     Dates: start: 20070331, end: 20070407
  4. OTHER BLOOD PRODUCTS [Concomitant]
     Indication: ANAEMIA

REACTIONS (1)
  - Lung infiltration [Recovered/Resolved]
